FAERS Safety Report 10130652 (Version 1)
Quarter: 2014Q2

REPORT INFORMATION
  Report Type: Spontaneous
  Country: US (occurrence: US)
  Receive Date: 20140428
  Receipt Date: 20140428
  Transmission Date: 20141212
  Serious: No
  Sender: FDA-Public Use
  Company Number: US-PFIZER INC-2014116711

PATIENT
  Age: 50 Year
  Sex: Male
  Weight: 77.1 kg

DRUGS (4)
  1. PHENYTOIN [Suspect]
     Indication: CONVULSION
     Dosage: 100 MG, 4X/DAY
  2. DIAZEPAM [Concomitant]
     Indication: ANXIETY
     Dosage: 10 MG, DAILY
  3. RANITIDINE [Concomitant]
     Indication: ABDOMINAL DISCOMFORT
     Dosage: 300 MG, AS NEEDED
  4. OXYCODONE [Concomitant]
     Indication: BACK INJURY
     Dosage: 30 MG, 6X/DAY

REACTIONS (1)
  - Drug ineffective [Unknown]
